FAERS Safety Report 22096974 (Version 1)
Quarter: 2023Q1

REPORT INFORMATION
  Report Type: Spontaneous
  Country: TR (occurrence: TR)
  Receive Date: 20230315
  Receipt Date: 20230315
  Transmission Date: 20230417
  Serious: Yes (Other)
  Sender: FDA-Public Use
  Company Number: TR-PFIZER INC-PV202300045774

PATIENT
  Age: 41 Year
  Sex: Male

DRUGS (3)
  1. BOSUTINIB [Suspect]
     Active Substance: BOSUTINIB
     Indication: Chronic myeloid leukaemia
     Dosage: 200 MG
  2. BOSUTINIB [Suspect]
     Active Substance: BOSUTINIB
     Dosage: 500 MG
  3. BOSUTINIB [Suspect]
     Active Substance: BOSUTINIB
     Dosage: 400 MG

REACTIONS (4)
  - Bicytopenia [Recovered/Resolved]
  - Asthenia [Unknown]
  - Fatigue [Unknown]
  - Nausea [Unknown]
